FAERS Safety Report 7119720-3 (Version None)
Quarter: 2010Q4

REPORT INFORMATION
  Report Type: 
  Country: None (occurrence: None)
  Receive Date: 20101123
  Receipt Date: 20101115
  Transmission Date: 20110411
  Serious: Yes (Hospitalization)
  Sender: FDA-Public Use
  Company Number: ES-TEVA-255729ISR

PATIENT
  Age: 51 Year
  Sex: Male

DRUGS (2)
  1. RIBAVIRIN [Suspect]
     Indication: HEPATITIS C
     Dates: start: 20100604, end: 20100625
  2. PEGINTERFERON ALFA-2A [Suspect]
     Indication: HEPATITIS C
     Dates: start: 20100604, end: 20100625

REACTIONS (6)
  - INSOMNIA [None]
  - NERVOUSNESS [None]
  - NEUTROPENIA [None]
  - PEAU D'ORANGE [None]
  - SEPTIC SHOCK [None]
  - THROMBOCYTOPENIA [None]
